FAERS Safety Report 19280797 (Version 2)
Quarter: 2021Q3

REPORT INFORMATION
  Report Type: Report from Study
  Country: MY (occurrence: MY)
  Receive Date: 20210520
  Receipt Date: 20210713
  Transmission Date: 20211014
  Serious: No
  Sender: FDA-Public Use
  Company Number: MY-ALLERGAN-2118895US

PATIENT
  Age: 59 Year
  Sex: Female
  Weight: 68 kg

DRUGS (20)
  1. PHENYLEPHRINE [Concomitant]
     Active Substance: PHENYLEPHRINE HYDROCHLORIDE
     Indication: PUPIL DILATION PROCEDURE
     Dosage: 1 DF, SINGLE
     Route: 061
     Dates: start: 20210211, end: 20210211
  2. PHENYLEPHRINE [Concomitant]
     Active Substance: PHENYLEPHRINE HYDROCHLORIDE
     Indication: INTRAOCULAR PRESSURE TEST
     Dosage: 1 DF, SINGLE
     Route: 061
     Dates: start: 20210107, end: 20210107
  3. PROPARACAINE HCL [Concomitant]
     Active Substance: PROPARACAINE HYDROCHLORIDE
     Dosage: 1 DF, BID
     Route: 061
     Dates: start: 20200910, end: 20200910
  4. CHLORPROMAZINE. [Concomitant]
     Active Substance: CHLORPROMAZINE
     Indication: SCHIZOPHRENIA
     Dosage: 250 MG, QD
     Route: 048
     Dates: start: 20210104
  5. CHLORPROMAZINE. [Concomitant]
     Active Substance: CHLORPROMAZINE
     Dosage: 250 MG, QD
     Route: 048
     Dates: start: 20190703, end: 20200909
  6. AMETHOCAINE HCL [Concomitant]
     Indication: PUPIL DILATION PROCEDURE
     Dosage: 1 DF, SINGLE
     Route: 061
     Dates: start: 20210211, end: 20210211
  7. CARIPRAZINE HCL 4.5MG CAP (TBD) [Suspect]
     Active Substance: CARIPRAZINE HYDROCHLORIDE
     Indication: SCHIZOPHRENIA
     Dosage: 4.5 MG, QD
     Route: 048
     Dates: start: 20201218, end: 20210103
  8. TROPICAMIDE. [Concomitant]
     Active Substance: TROPICAMIDE
     Indication: INTRAOCULAR PRESSURE TEST
     Dosage: 1 DF, SINGLE
     Route: 061
     Dates: start: 20210107, end: 20210107
  9. TROPICAMIDE. [Concomitant]
     Active Substance: TROPICAMIDE
     Dosage: 1 DF, BID
     Route: 061
     Dates: start: 20200910, end: 20200910
  10. RISPERIDONE. [Concomitant]
     Active Substance: RISPERIDONE
     Indication: SCHIZOPHRENIA
     Dosage: 3 MG, QD
     Route: 048
     Dates: start: 20210104
  11. RISPERIDONE. [Concomitant]
     Active Substance: RISPERIDONE
     Dosage: 1 MG, BID
     Route: 048
     Dates: start: 20191002, end: 20200204
  12. PHENYLEPHRINE [Concomitant]
     Active Substance: PHENYLEPHRINE HYDROCHLORIDE
     Dosage: 1 DF, BID
     Route: 061
     Dates: start: 20200910, end: 20200910
  13. CHLORPROMAZINE. [Concomitant]
     Active Substance: CHLORPROMAZINE
     Dosage: 200 MG, QD
     Route: 048
     Dates: start: 20181012, end: 20190702
  14. PROPARACAINE HCL [Concomitant]
     Active Substance: PROPARACAINE HYDROCHLORIDE
     Indication: PUPIL DILATION PROCEDURE
     Dosage: 1 DF, SINGLE
     Route: 061
     Dates: start: 20210107, end: 20210107
  15. AMETHOCAINE HCL [Concomitant]
     Indication: INTRAOCULAR PRESSURE TEST
  16. RISPERIDONE. [Concomitant]
     Active Substance: RISPERIDONE
     Dosage: 2 MG, QD
     Route: 048
     Dates: start: 20200910, end: 20200912
  17. TROPICAMIDE. [Concomitant]
     Active Substance: TROPICAMIDE
     Indication: PUPIL DILATION PROCEDURE
     Dosage: 1 DF, SINGLE
     Route: 061
     Dates: start: 20210211, end: 20210211
  18. CHLORPROMAZINE. [Concomitant]
     Active Substance: CHLORPROMAZINE
     Dosage: 150 MG, QD
     Route: 048
     Dates: start: 20200910, end: 20200912
  19. RISPERIDONE. [Concomitant]
     Active Substance: RISPERIDONE
     Dosage: 1 MG, QD
     Route: 048
     Dates: start: 20200913, end: 20200914
  20. RISPERIDONE. [Concomitant]
     Active Substance: RISPERIDONE
     Dosage: 3 MG, QD
     Route: 048
     Dates: start: 20200205, end: 20200909

REACTIONS (1)
  - Cataract [Not Recovered/Not Resolved]

NARRATIVE: CASE EVENT DATE: 20210107
